FAERS Safety Report 5740198-6 (Version None)
Quarter: 2008Q2

REPORT INFORMATION
  Report Type: 
  Country: None (occurrence: None)
  Receive Date: 20080516
  Receipt Date: 20080505
  Transmission Date: 20081010
  Serious: Yes (Death, Other)
  Sender: FDA-Public Use
  Company Number: HQWYE449027JUL04

PATIENT
  Sex: Female

DRUGS (5)
  1. PREMPRO [Suspect]
     Indication: HORMONE REPLACEMENT THERAPY
  2. PREMARIN [Suspect]
  3. PROVERA [Suspect]
  4. OGEN [Suspect]
  5. ESTRADERM [Suspect]

REACTIONS (2)
  - BREAST CANCER [None]
  - OVARIAN CANCER METASTATIC [None]
